FAERS Safety Report 8413697-6 (Version None)
Quarter: 2012Q2

REPORT INFORMATION
  Report Type: 
  Country: None (occurrence: None)
  Receive Date: 20120605
  Receipt Date: 20120530
  Transmission Date: 20120825
  Serious: Yes (Hospitalization)
  Sender: FDA-Public Use
  Company Number: FR-BAYER-2012-054300

PATIENT
  Age: 34 Year
  Sex: Female

DRUGS (12)
  1. MOXIFLOXACIN HCL [Suspect]
     Dosage: 400 MG, UNK
     Route: 048
     Dates: start: 20120305, end: 20120321
  2. FLAGYL [Suspect]
     Dosage: UNK
     Route: 048
     Dates: start: 20120305, end: 20120326
  3. OXYNORM [Concomitant]
  4. DAPSONE [Concomitant]
  5. POTASSIUM CHLORIDE [Concomitant]
  6. SOPHIDONE [Concomitant]
  7. CYMBALTA [Concomitant]
     Dosage: 60 MG, UNK
  8. NEURONTIN [Concomitant]
     Dosage: 600 MG, UNK
  9. RIFADIN [Suspect]
     Dosage: 600 MG, UNK
     Route: 048
     Dates: start: 20120305, end: 20120321
  10. PREDNISONE TAB [Concomitant]
     Dosage: 50 MG, UNK
  11. CACIT D3 [Concomitant]
  12. AMITRIPTYLINE HCL [Concomitant]

REACTIONS (6)
  - CYTOLYTIC HEPATITIS [None]
  - HAEMOLYTIC ANAEMIA [None]
  - HAEMODIALYSIS [None]
  - DISSEMINATED INTRAVASCULAR COAGULATION [None]
  - HEPATIC FAILURE [None]
  - RENAL FAILURE ACUTE [None]
